FAERS Safety Report 16529512 (Version 1)
Quarter: 2019Q3

REPORT INFORMATION
  Report Type: Report from Study
  Country: DE (occurrence: DE)
  Receive Date: 20190703
  Receipt Date: 20190703
  Transmission Date: 20191004
  Serious: Yes (Other)
  Sender: FDA-Public Use
  Company Number: DE-BIOGEN-2016BI00287253

PATIENT
  Age: 57 Year
  Sex: Female

DRUGS (1)
  1. TECFIDERA [Suspect]
     Active Substance: DIMETHYL FUMARATE
     Indication: PRODUCT USED FOR UNKNOWN INDICATION
     Dosage: MAINTENANCE DOSE
     Route: 048
     Dates: start: 20140709

REACTIONS (7)
  - Multiple sclerosis relapse [Recovered/Resolved]
  - Asthenia [Not Recovered/Not Resolved]
  - Temperature intolerance [Not Recovered/Not Resolved]
  - Visual acuity reduced [Not Recovered/Not Resolved]
  - Fatigue [Not Recovered/Not Resolved]
  - Monoplegia [Not Recovered/Not Resolved]
  - Indifference [Not Recovered/Not Resolved]

NARRATIVE: CASE EVENT DATE: 20160601
